FAERS Safety Report 11447487 (Version 3)
Quarter: 2025Q2

REPORT INFORMATION
  Report Type: Spontaneous
  Country: US (occurrence: US)
  Receive Date: 20150902
  Receipt Date: 20250509
  Transmission Date: 20250717
  Serious: Yes (Other)
  Sender: JOHNSON AND JOHNSON
  Company Number: US-JNJFOC-20150717392

PATIENT
  Age: 5 Year
  Sex: Male

DRUGS (4)
  1. RISPERIDONE [Suspect]
     Active Substance: RISPERIDONE
     Indication: Attention deficit hyperactivity disorder
     Route: 048
     Dates: start: 200405, end: 200508
  2. RISPERIDONE [Suspect]
     Active Substance: RISPERIDONE
     Indication: Behaviour disorder
  3. RISPERIDONE [Suspect]
     Active Substance: RISPERIDONE
     Indication: Mood swings
  4. RISPERIDONE [Suspect]
     Active Substance: RISPERIDONE
     Indication: Defiant behaviour

REACTIONS (4)
  - Gynaecomastia [Recovering/Resolving]
  - Weight increased [Unknown]
  - Emotional disorder [Unknown]
  - Therapeutic product effect decreased [Unknown]

NARRATIVE: CASE EVENT DATE: 20040901
